FAERS Safety Report 6786015-7 (Version None)
Quarter: 2010Q2

REPORT INFORMATION
  Report Type: 
  Country: None (occurrence: None)
  Receive Date: 20100623
  Receipt Date: 20100618
  Transmission Date: 20101027
  Serious: Yes (Hospitalization)
  Sender: FDA-Public Use
  Company Number: US-SANOFI-AVENTIS-2010SA035808

PATIENT
  Sex: Male
  Weight: 85 kg

DRUGS (10)
  1. PLAVIX [Suspect]
     Indication: ANTICOAGULANT THERAPY
     Route: 065
  2. LOVENOX [Suspect]
     Indication: THROMBOSIS PROPHYLAXIS
     Route: 065
  3. INVESTIGATIONAL DRUG [Suspect]
     Indication: COGNITIVE DISORDER
     Route: 065
     Dates: start: 20091117, end: 20091124
  4. INVESTIGATIONAL DRUG [Suspect]
     Route: 065
     Dates: start: 20091125, end: 20091201
  5. INVESTIGATIONAL DRUG [Suspect]
     Dosage: 10MG IN AM, 5MG IN PM
     Route: 065
     Dates: start: 20091202, end: 20091209
  6. INVESTIGATIONAL DRUG [Suspect]
     Route: 065
     Dates: start: 20091210, end: 20100504
  7. CARBOPLATIN [Suspect]
     Indication: CHEMOTHERAPY
     Route: 065
  8. TAXOL [Suspect]
     Indication: CHEMOTHERAPY
     Route: 065
  9. COMPAZINE [Concomitant]
  10. PHENYTOIN [Concomitant]

REACTIONS (1)
  - ANAEMIA [None]
